FAERS Safety Report 9695666 (Version 2)
Quarter: 2013Q4

REPORT INFORMATION
  Report Type: Spontaneous
  Country: US (occurrence: US)
  Receive Date: 20131119
  Receipt Date: 20131227
  Transmission Date: 20140711
  Serious: Yes (Congenital Anomaly, Other)
  Sender: FDA-Public Use
  Company Number: US-PFIZER INC-2013326578

PATIENT
  Sex: Male

DRUGS (6)
  1. ZOLOFT [Suspect]
     Indication: DEPRESSION
     Dosage: UNK
     Route: 064
     Dates: start: 2006, end: 201001
  2. SERTRALINE HCL [Suspect]
     Indication: DEPRESSION
     Dosage: UNK
     Route: 064
     Dates: start: 2006, end: 201001
  3. PRENATAL PLUS [Concomitant]
     Dosage: UNK
     Route: 064
  4. PRENATAL MULTIVITAMINS WITH FOLIC ACID [Concomitant]
     Dosage: UNK
     Route: 064
  5. CALCIUM [Concomitant]
     Dosage: UNK
     Route: 064
  6. VITAMIN D [Concomitant]
     Dosage: UNK
     Route: 064

REACTIONS (3)
  - Foetal exposure during pregnancy [Unknown]
  - Cleft lip and palate [Unknown]
  - Supernumerary teeth [Unknown]
